FAERS Safety Report 11596235 (Version 5)
Quarter: 2016Q1

REPORT INFORMATION
  Report Type: Spontaneous
  Country: US (occurrence: US)
  Receive Date: 20151006
  Receipt Date: 20160211
  Transmission Date: 20160525
  Serious: Yes (Hospitalization, Other)
  Sender: FDA-Public Use
  Company Number: US-JNJFOC-20151000443

PATIENT
  Age: 43 Year
  Sex: Female
  Weight: 119.3 kg

DRUGS (2)
  1. INVOKANA [Suspect]
     Active Substance: CANAGLIFLOZIN
     Indication: TYPE 2 DIABETES MELLITUS
     Route: 048
  2. INVOKAMET [Suspect]
     Active Substance: CANAGLIFLOZIN\METFORMIN HYDROCHLORIDE
     Indication: TYPE 2 DIABETES MELLITUS
     Dosage: 150-1000 MG
     Route: 048
     Dates: start: 20141209

REACTIONS (7)
  - Urosepsis [Recovered/Resolved]
  - Renal abscess [Recovering/Resolving]
  - Pyelonephritis [Recovering/Resolving]
  - Acute kidney injury [Recovering/Resolving]
  - Perinephric abscess [Recovering/Resolving]
  - Metabolic acidosis [Recovered/Resolved]
  - Respiratory failure [Unknown]

NARRATIVE: CASE EVENT DATE: 201501
